FAERS Safety Report 4695517-9 (Version None)
Quarter: 2005Q2

REPORT INFORMATION
  Report Type: 
  Country: None (occurrence: None)
  Receive Date: 20050620
  Receipt Date: 20050620
  Transmission Date: 20051028
  Serious: Yes (Hospitalization)
  Sender: FDA-Public Use
  Company Number: None

PATIENT
  Age: 34 Year
  Sex: Female
  Weight: 107.6 kg

DRUGS (11)
  1. BLEOMYCIN [Suspect]
     Indication: HODGKIN'S DISEASE
     Dosage: 11 UNITS    EVERY OTHER WK   INTRAVENOU
     Route: 042
     Dates: start: 20050413, end: 20050526
  2. VINCRISTINE [Suspect]
     Indication: HODGKIN'S DISEASE
     Dosage: 3 MG   EVERY OTHER WK  INTRAVENOU
     Route: 042
     Dates: start: 20050413, end: 20050526
  3. ALBUTEROL [Concomitant]
  4. FLOVENT [Concomitant]
  5. ADVAIR [Concomitant]
  6. CPAP MACHINE [Concomitant]
  7. TESSALON [Concomitant]
  8. OXYCODONE HCL [Concomitant]
  9. PHENERGAN [Concomitant]
  10. ROBITUSSIN EXPECTORANT [Concomitant]
  11. KLONOPIN [Concomitant]

REACTIONS (2)
  - PNEUMONIA [None]
  - UPPER RESPIRATORY TRACT INFECTION [None]
